FAERS Safety Report 7733801-2 (Version None)
Quarter: 2011Q3

REPORT INFORMATION
  Report Type: 
  Country: None (occurrence: None)
  Receive Date: 20110907
  Receipt Date: 20110830
  Transmission Date: 20111222
  Serious: Yes (Other)
  Sender: FDA-Public Use
  Company Number: PHEH2011US02901

PATIENT
  Sex: Female

DRUGS (4)
  1. DARVOCET [Concomitant]
     Dosage: 100 MG, UNK
  2. TOPAMAX [Concomitant]
  3. ABILIFY [Concomitant]
     Dosage: 7 MG, UNK
  4. FOCALIN [Suspect]
     Dosage: 20 MG, QD

REACTIONS (3)
  - BREAST CANCER [None]
  - BREAST CANCER IN SITU [None]
  - NEOPLASM PROGRESSION [None]
